FAERS Safety Report 8487389-1 (Version None)
Quarter: 2012Q2

REPORT INFORMATION
  Report Type: 
  Country: None (occurrence: None)
  Receive Date: 20120628
  Receipt Date: 20120628
  Transmission Date: 20120825
  Serious: Yes (Life-Threatening, Hospitalization)
  Sender: FDA-Public Use
  Company Number: None

PATIENT
  Age: 51 Year
  Sex: Female

DRUGS (2)
  1. PEGASYS [Suspect]
     Indication: HEPATITIS C
     Dosage: PEGASYS 180MG QW SQ
     Route: 058
     Dates: start: 20120404, end: 20120626
  2. RIBAVARIN [Suspect]
     Indication: HEPATITIS C
     Dosage: RIBAVIRIN 1000MG DAILY PO
     Route: 048
     Dates: start: 20120404, end: 20120626

REACTIONS (3)
  - DIALYSIS [None]
  - DRUG HYPERSENSITIVITY [None]
  - RENAL FAILURE ACUTE [None]
